FAERS Safety Report 7136841-X (Version None)
Quarter: 2010Q4

REPORT INFORMATION
  Report Type: 
  Country: None (occurrence: None)
  Receive Date: 20101206
  Receipt Date: 20090401
  Transmission Date: 20110411
  Serious: Yes (Death)
  Sender: FDA-Public Use
  Company Number: US-ACTELION-A-NJ2008-21517

PATIENT

DRUGS (13)
  1. BOSENTAN TABLET 125 MG US [Suspect]
     Indication: PULMONARY HYPERTENSION
     Dosage: 125 MG, BID
     Route: 048
     Dates: start: 20080506, end: 20080701
  2. BOSENTAN TABLET 125 MG US [Suspect]
     Dosage: 62.5 MG, BID
     Route: 048
     Dates: start: 20080813
  3. SIMVASTATIN [Suspect]
  4. SINGULAIR [Concomitant]
  5. DILTIAZEM [Concomitant]
  6. FUROSEMIDE [Concomitant]
  7. ATENOLOL [Concomitant]
  8. FLURBIPROFEN [Concomitant]
  9. DIOVAN [Concomitant]
  10. ADVAIR [Concomitant]
  11. SPIRIVA [Concomitant]
  12. ALBUTEROL [Concomitant]
  13. OXYGEN [Concomitant]

REACTIONS (8)
  - ALANINE AMINOTRANSFERASE INCREASED [None]
  - ASPARTATE AMINOTRANSFERASE INCREASED [None]
  - BLOOD ALKALINE PHOSPHATASE INCREASED [None]
  - BLOOD BILIRUBIN INCREASED [None]
  - DEATH [None]
  - HEPATIC ENZYME INCREASED [None]
  - OFF LABEL USE [None]
  - WEIGHT DECREASED [None]
